FAERS Safety Report 4853517-X (Version None)
Quarter: 2005Q4

REPORT INFORMATION
  Report Type: 
  Country: None (occurrence: None)
  Receive Date: 20051212
  Receipt Date: 20051123
  Transmission Date: 20060501
  Serious: Yes (Hospitalization, Other)
  Sender: FDA-Public Use
  Company Number: GBS050918534

PATIENT
  Age: 1 Day
  Sex: Female
  Weight: 3.7 kg

DRUGS (2)
  1. OLANZAPINE [Suspect]
     Dosage: TRANSPLACENTAL
     Dates: end: 20050630
  2. EFFEXOR XR [Concomitant]

REACTIONS (5)
  - DRUG EXPOSURE DURING PREGNANCY [None]
  - FEEDING DISORDER NEONATAL [None]
  - ORAL CANDIDIASIS [None]
  - POOR SUCKING REFLEX [None]
  - SOMNOLENCE NEONATAL [None]
